FAERS Safety Report 21624212 (Version 1)
Quarter: 2022Q4

REPORT INFORMATION
  Report Type: Report from Study
  Country: US (occurrence: None)
  Receive Date: 20221121
  Receipt Date: 20221121
  Transmission Date: 20230113
  Serious: Yes (Hospitalization)
  Sender: FDA-Public Use
  Company Number: US-Merck Healthcare KGaA-9366245

PATIENT
  Sex: Female

DRUGS (3)
  1. REBIF [Suspect]
     Active Substance: INTERFERON BETA-1A
     Indication: Multiple sclerosis
     Route: 058
     Dates: start: 20110928
  2. REBIF [Suspect]
     Active Substance: INTERFERON BETA-1A
     Dosage: FOR LAST 2 MONTHS (AS OF 15 NOV 2022)
     Route: 058
  3. REBIF [Suspect]
     Active Substance: INTERFERON BETA-1A
     Dosage: WHICH STARTED THIS WEEK (AS OF 15 NOV 2022)
     Route: 058

REACTIONS (1)
  - Haematoma [Recovering/Resolving]
